FAERS Safety Report 7069074-6 (Version None)
Quarter: 2010Q4

REPORT INFORMATION
  Report Type: 
  Country: None (occurrence: None)
  Receive Date: 20101028
  Receipt Date: 20101021
  Transmission Date: 20110411
  Serious: Yes (Other)
  Sender: FDA-Public Use
  Company Number: US-PURDUE-USA-2010-0050314

PATIENT
  Sex: Female

DRUGS (3)
  1. OXYCONTIN [Suspect]
     Indication: PAIN
     Dosage: 80 MG, TID
     Route: 048
     Dates: start: 20010101, end: 20080401
  2. OXYCODONE HCL [Concomitant]
     Indication: BREAKTHROUGH PAIN
  3. COUMADIN [Concomitant]
     Indication: DEEP VEIN THROMBOSIS

REACTIONS (9)
  - ABDOMINAL DISCOMFORT [None]
  - BLOOD CORTISOL DECREASED [None]
  - CLOSTRIDIUM DIFFICILE COLITIS [None]
  - DEPRESSION [None]
  - DIARRHOEA [None]
  - DRUG WITHDRAWAL SYNDROME [None]
  - PAIN THRESHOLD DECREASED [None]
  - SOMNOLENCE [None]
  - WEIGHT DECREASED [None]
